FAERS Safety Report 4809140-6 (Version None)
Quarter: 2005Q4

REPORT INFORMATION
  Report Type: 
  Country: None (occurrence: None)
  Receive Date: 20051021
  Receipt Date: 20051010
  Transmission Date: 20060501
  Serious: Yes (Hospitalization, Other)
  Sender: FDA-Public Use
  Company Number: PHBS2005GB12608

PATIENT
  Age: 55 Year
  Sex: Male

DRUGS (10)
  1. ISOSORBIDE MONONITRATE [Suspect]
     Dosage: 60 MG, QD,
  2. HYDRALAZINE HCL [Suspect]
     Dosage: 50 MG, BID,
  3. ASPIRIN [Suspect]
     Dosage: 75 MG, QD,
  4. RAMIPRIL [Suspect]
     Dosage: 2.5 MG, QD,
  5. METFORMIN HCL [Suspect]
     Dosage: 850 MG, TID,
  6. ATORVASTATIN CALCIUM [Suspect]
     Dosage: 10 MG, QD,
  7. BENDROFLUMETHIAZIDE (BENDROFLUMETHIAZIDE) [Suspect]
     Dosage: 2.5 MG, QD,
  8. AMLODIPINE [Suspect]
     Dosage: SEE IMAGE
  9. PIOGLITAZONE HCL [Suspect]
     Dosage: 15 MG, QD,
  10. METHYLDOPA [Suspect]
     Dosage: 250 MG, TID,

REACTIONS (9)
  - ATRIAL FIBRILLATION [None]
  - CEREBRAL HAEMATOMA [None]
  - CEREBROVASCULAR DISORDER [None]
  - GLUCOSE URINE PRESENT [None]
  - HAEMORRHAGIC STROKE [None]
  - HYPERTENSION [None]
  - ISCHAEMIC STROKE [None]
  - PROTEINURIA [None]
  - VENTRICULAR HYPERTROPHY [None]
